FAERS Safety Report 19818092 (Version 1)
Quarter: 2021Q3

REPORT INFORMATION
  Report Type: Spontaneous
  Country: US (occurrence: US)
  Receive Date: 20210911
  Receipt Date: 20210911
  Transmission Date: 20211014
  Serious: No
  Sender: FDA-Public Use
  Company Number: US-SA-2021SA298208

PATIENT
  Sex: Female

DRUGS (1)
  1. ALLEGRA ALLERGY [Suspect]
     Active Substance: FEXOFENADINE HYDROCHLORIDE
     Dosage: DRUG STRUCTURE DOSAGE : SEE NARRATIVE DRUG INTERVAL DOSAGE : QD DRUG TREATMENT DURATION: SEE NARRATI
     Route: 048
     Dates: start: 20210824

REACTIONS (2)
  - Dry mouth [Recovering/Resolving]
  - Nervousness [Not Recovered/Not Resolved]
